FAERS Safety Report 8925082 (Version 2)
Quarter: 2013Q1

REPORT INFORMATION
  Report Type: Report from Study
  Country: US (occurrence: US)
  Receive Date: 20121126
  Receipt Date: 20130104
  Transmission Date: 20140127
  Serious: No
  Sender: FDA-Public Use
  Company Number: US-VERTEX PHARMACEUTICAL INC.-2012-023531

PATIENT
  Age: 50 None
  Sex: Female

DRUGS (6)
  1. VX-950 (TELAPREVIR) [Suspect]
     Indication: HEPATITIS C
     Dosage: 750 MG, TID
     Route: 048
     Dates: start: 2012
  2. RIBASPHERE [Suspect]
     Indication: HEPATITIS C
     Dosage: 1000 MG, QD
     Dates: start: 2012
  3. PEGASYS [Suspect]
     Indication: HEPATITIS C
     Dosage: 180 ?G, QW
     Route: 058
     Dates: start: 2012
  4. FLUOXETINE HCL [Concomitant]
     Dosage: 20 MG, QD
     Dates: start: 20121009
  5. VALTREX [Concomitant]
     Dosage: 500 MG, QD
     Dates: start: 20121009
  6. ESTRADIOL [Concomitant]
     Dosage: 0.5 MG, QD
     Dates: start: 20121009

REACTIONS (11)
  - Insomnia [Unknown]
  - Tremor [Unknown]
  - Fatigue [Unknown]
  - Asthenia [Unknown]
  - Red blood cell count decreased [Unknown]
  - Rash generalised [Unknown]
  - Urticaria [Unknown]
  - Pruritus [Unknown]
  - Nausea [Unknown]
  - Vomiting [Unknown]
  - Dysgeusia [Unknown]
